FAERS Safety Report 18946909 (Version 1)
Quarter: 2021Q1

REPORT INFORMATION
  Report Type: Spontaneous
  Country: GB (occurrence: GB)
  Receive Date: 20210226
  Receipt Date: 20210226
  Transmission Date: 20210420
  Serious: Yes (Other)
  Sender: FDA-Public Use
  Company Number: US-ORGANON-2012USA004537

PATIENT
  Sex: Male

DRUGS (2)
  1. ACCUTANE [Suspect]
     Active Substance: ISOTRETINOIN
     Dosage: UNK
  2. PROPECIA [Suspect]
     Active Substance: FINASTERIDE
     Indication: ANDROGENETIC ALOPECIA
     Dosage: UNK
     Route: 048

REACTIONS (85)
  - Tinnitus [Unknown]
  - Eye pain [Unknown]
  - Dysphonia [Unknown]
  - Amnesia [Unknown]
  - Judgement impaired [Unknown]
  - Abdominal pain [Unknown]
  - Ocular hyperaemia [Unknown]
  - Depressed mood [Unknown]
  - Inner ear disorder [Unknown]
  - Confusional state [Unknown]
  - Headache [Unknown]
  - Asthenia [Unknown]
  - Back pain [Unknown]
  - Food intolerance [Unknown]
  - Ill-defined disorder [Unknown]
  - Pigmentation disorder [Unknown]
  - Bradycardia [Unknown]
  - Erectile dysfunction [Unknown]
  - Disturbance in attention [Unknown]
  - Obsessive-compulsive disorder [Unknown]
  - Merycism [Unknown]
  - Thinking abnormal [Unknown]
  - Asteatosis [Unknown]
  - Urine output increased [Unknown]
  - Diarrhoea [Unknown]
  - Blood pressure abnormal [Unknown]
  - Photophobia [Unknown]
  - Toothache [Unknown]
  - Flushing [Unknown]
  - Peripheral coldness [Unknown]
  - Abdominal distension [Unknown]
  - Dehydration [Unknown]
  - Food craving [Unknown]
  - Dyskinesia [Unknown]
  - Gene mutation [Unknown]
  - Quality of life decreased [Unknown]
  - Haemorrhage [Unknown]
  - Throat irritation [Unknown]
  - Vision blurred [Unknown]
  - Insomnia [Unknown]
  - Nightmare [Unknown]
  - Fatigue [Unknown]
  - Chromaturia [Unknown]
  - Renal pain [Unknown]
  - Malabsorption [Unknown]
  - Bowel movement irregularity [Unknown]
  - Balance disorder [Unknown]
  - Hypersensitivity [Unknown]
  - Pupils unequal [Unknown]
  - Dry mouth [Unknown]
  - Gingival bleeding [Unknown]
  - Sensory loss [Unknown]
  - Chest pain [Unknown]
  - Muscle atrophy [Unknown]
  - Disease progression [Unknown]
  - Nasal disorder [Unknown]
  - Hyperhidrosis [Unknown]
  - Psoriasis [Unknown]
  - Nipple pain [Unknown]
  - Testis cancer recurrent [Unknown]
  - Haematochezia [Unknown]
  - Anosmia [Unknown]
  - Paraesthesia [Unknown]
  - Hypogeusia [Unknown]
  - Irritability [Unknown]
  - Anxiety [Unknown]
  - Onychoclasis [Unknown]
  - Pain in extremity [Unknown]
  - Gastrooesophageal reflux disease [Unknown]
  - Somnolence [Unknown]
  - Urticaria [Unknown]
  - Adverse event [Unknown]
  - Suicidal ideation [Unknown]
  - Pyrexia [Unknown]
  - Gingival recession [Unknown]
  - Agitation [Unknown]
  - Fear [Unknown]
  - Lipoatrophy [Unknown]
  - Skin burning sensation [Unknown]
  - Dry skin [Unknown]
  - Androgen deficiency [Unknown]
  - Perineal pain [Unknown]
  - Nausea [Unknown]
  - General physical health deterioration [Unknown]
  - Contusion [Unknown]
